FAERS Safety Report 8515929-2 (Version None)
Quarter: 2012Q3

REPORT INFORMATION
  Report Type: 
  Country: None (occurrence: None)
  Receive Date: 20120717
  Receipt Date: 20120705
  Transmission Date: 20120928
  Serious: Yes (Death)
  Sender: FDA-Public Use
  Company Number: DK-INCYTE CORPORATION-2012IN001214

PATIENT
  Sex: Male

DRUGS (6)
  1. INC424 [Suspect]
     Indication: MYELOFIBROSIS
     Dosage: 25 MG, QD
     Dates: start: 20120516, end: 20120627
  2. AIROMIR [Concomitant]
  3. ASPIRIN [Concomitant]
  4. CITALOPRAM HYDROBROMIDE [Concomitant]
  5. PROBENECID [Concomitant]
  6. ACETAMINOPHEN [Concomitant]

REACTIONS (1)
  - CARDIAC FAILURE [None]
